FAERS Safety Report 16838320 (Version 1)
Quarter: 2019Q4

REPORT INFORMATION
  Report Type: Spontaneous
  Country: US (occurrence: US)
  Receive Date: 20190920
  Receipt Date: 20190920
  Transmission Date: 20200122
  Serious: Yes (Other)
  Sender: FDA-Public Use
  Company Number: None

PATIENT
  Age: 45 Year
  Sex: Female
  Weight: 51.75 kg

DRUGS (1)
  1. NERLYNX [Suspect]
     Active Substance: NERATINIB
     Indication: BREAST CANCER
     Route: 048
     Dates: start: 20190716

REACTIONS (5)
  - Red blood cell sedimentation rate increased [None]
  - Arthralgia [None]
  - Neuropathy peripheral [None]
  - Burning sensation [None]
  - Tongue discomfort [None]

NARRATIVE: CASE EVENT DATE: 20190919
